FAERS Safety Report 7039737-7 (Version None)
Quarter: 2010Q4

REPORT INFORMATION
  Report Type: 
  Country: None (occurrence: None)
  Receive Date: 20101012
  Receipt Date: 20101004
  Transmission Date: 20110411
  Serious: No
  Sender: FDA-Public Use
  Company Number: US-B.I. PHARMACEUTICALS,INC./RIDGEFIELD-2010-BP-11224BP

PATIENT
  Sex: Male

DRUGS (1)
  1. SPIRIVA [Suspect]

REACTIONS (5)
  - ASTHENOPIA [None]
  - DRY MOUTH [None]
  - DYSPNOEA [None]
  - NASAL CONGESTION [None]
  - PARAESTHESIA [None]
